FAERS Safety Report 11270165 (Version 3)
Quarter: 2015Q3

REPORT INFORMATION
  Report Type: Spontaneous
  Country: JP (occurrence: JP)
  Receive Date: 20150714
  Receipt Date: 20150917
  Transmission Date: 20151125
  Serious: Yes (Hospitalization)
  Sender: FDA-Public Use
  Company Number: JP-SHIRE-JP201507515

PATIENT
  Age: 54 Year
  Sex: Female

DRUGS (10)
  1. PRECIPITATED CALCIUM CARBONATE [Concomitant]
     Active Substance: CALCIUM CARBONATE
     Indication: HYPERPHOSPHATAEMIA
     Dosage: 3000 MG, UNKNOWN
     Route: 048
  2. FOSRENOL [Suspect]
     Active Substance: LANTHANUM CARBONATE
     Indication: HYPERPHOSPHATAEMIA
     Dosage: 1500 MG, UNKNOWN
     Route: 048
     Dates: end: 20150212
  3. THYRADIN S [Suspect]
     Active Substance: LEVOTHYROXINE SODIUM
     Dosage: 200 ?G, 1X/DAY:QD (AT TIME OF AWAKENING)
     Route: 048
     Dates: start: 201502
  4. ALEVIATIN [Suspect]
     Active Substance: PHENYTOIN SODIUM
     Dosage: 50 MG, UNKNOWN
     Route: 048
     Dates: start: 201502, end: 20150302
  5. ALEVIATIN [Suspect]
     Active Substance: PHENYTOIN SODIUM
     Indication: EPILEPSY
     Dosage: 200 MG, UNKNOWN
     Route: 048
     Dates: end: 201502
  6. BAYASPIRIN [Concomitant]
     Active Substance: ASPIRIN
     Indication: CEREBROVASCULAR ACCIDENT PROPHYLAXIS
     Dosage: 100 MG, UNKNOWN
     Route: 048
  7. THYRADIN S [Suspect]
     Active Substance: LEVOTHYROXINE SODIUM
     Indication: HYPOTHYROIDISM
     Dosage: 200 ?G, 1X/DAY:QD (AFTER BREAKFAST)
     Route: 048
     Dates: end: 201502
  8. TEGRETOL [Concomitant]
     Active Substance: CARBAMAZEPINE
     Indication: SEIZURE
     Dosage: 600 MG, UNKNOWN
     Route: 048
  9. PHENOBAL                           /00023201/ [Concomitant]
     Active Substance: PHENOBARBITAL
     Indication: SEIZURE
     Dosage: 120 MG, UNKNOWN
     Route: 048
  10. KALIAID [Concomitant]
     Indication: HYPERKALAEMIA
     Dosage: 3000 MG, UNKNOWN
     Route: 048

REACTIONS (4)
  - Upper respiratory tract infection [Unknown]
  - Hypothyroidism [Recovered/Resolved]
  - Condition aggravated [Recovered/Resolved]
  - Drug interaction [Recovered/Resolved]

NARRATIVE: CASE EVENT DATE: 20150206
